FAERS Safety Report 13813659 (Version 1)
Quarter: 2020Q3

REPORT INFORMATION
  Report Type: Report from Study
  Country: ES (occurrence: ES)
  Receive Date: 20170731
  Receipt Date: 20170731
  Transmission Date: 20201104
  Serious: Yes (Death)
  Sender: FDA-Public Use
  Company Number: ES-ASTRAZENECA-2017SE76687

PATIENT
  Age: 23318 Day
  Sex: Male
  Weight: 75 kg

DRUGS (5)
  1. TREMELIMUMAB. [Suspect]
     Active Substance: TREMELIMUMAB
     Indication: NEUROENDOCRINE TUMOUR
     Dosage: 75.0MG ONCE/SINGLE ADMINISTRATION
     Route: 042
     Dates: start: 20170717
  2. MEDI4736 [Suspect]
     Active Substance: DURVALUMAB
     Indication: NEUROENDOCRINE TUMOUR
     Dosage: 1500.0MG ONCE/SINGLE ADMINISTRATION
     Route: 042
     Dates: start: 20170717
  3. OCTREOTIDE. [Concomitant]
     Active Substance: OCTREOTIDE
     Indication: CARCINOID SYNDROME
     Dosage: 600 MG
     Route: 042
     Dates: start: 20170629
  4. SOMATULINE [Concomitant]
     Active Substance: LANREOTIDE ACETATE
     Indication: NEUROENDOCRINE TUMOUR
     Dosage: 120MG/21D
     Route: 042
     Dates: start: 201504
  5. GLICLAZIDE [Concomitant]
     Active Substance: GLICLAZIDE
     Indication: DIABETES MELLITUS
     Dosage: 30 MG
     Route: 048
     Dates: start: 20170424

REACTIONS (3)
  - Diarrhoea [Fatal]
  - Acute kidney injury [Fatal]
  - Encephalitis [Fatal]

NARRATIVE: CASE EVENT DATE: 20170725
